FAERS Safety Report 6823810-X (Version None)
Quarter: 2010Q3

REPORT INFORMATION
  Report Type: 
  Country: None (occurrence: None)
  Receive Date: 20100708
  Receipt Date: 20060907
  Transmission Date: 20110219
  Serious: No
  Sender: FDA-Public Use
  Company Number: US-PFIZER INC-2006110091

PATIENT
  Sex: Female
  Weight: 70.31 kg

DRUGS (6)
  1. VARENICLINE [Suspect]
     Indication: EX-TOBACCO USER
     Dates: start: 20060808
  2. LEVOXYL [Concomitant]
     Route: 048
  3. AVANDIA [Concomitant]
     Route: 048
  4. CAPTOPRIL [Concomitant]
     Route: 048
  5. GLIPIZIDE [Concomitant]
     Route: 048
  6. LOVASTATIN [Concomitant]
     Route: 048

REACTIONS (2)
  - NAUSEA [None]
  - VOMITING [None]
